FAERS Safety Report 9823223 (Version 5)
Quarter: 2014Q3

REPORT INFORMATION
  Report Type: Spontaneous
  Country: JP (occurrence: JP)
  Receive Date: 20140116
  Receipt Date: 20140912
  Transmission Date: 20150326
  Serious: Yes (Hospitalization, Other)
  Sender: FDA-Public Use
  Company Number: JP-JNJFOC-20131216924

PATIENT
  Age: 65 Year
  Sex: Male
  Weight: 68 kg

DRUGS (7)
  1. PEGINTRON [Suspect]
     Active Substance: PEGINTERFERON ALFA-2B
     Indication: CHRONIC HEPATITIS C
     Route: 058
     Dates: start: 20131210, end: 20131210
  2. BRUFEN [Concomitant]
     Active Substance: IBUPROFEN
     Indication: PROPHYLAXIS
     Route: 048
     Dates: start: 20131210, end: 20131217
  3. SODIUM RABEPRAZOLE [Concomitant]
     Active Substance: RABEPRAZOLE SODIUM
     Indication: PROPHYLAXIS
     Route: 048
     Dates: start: 20131210, end: 20131217
  4. SOVRIAD [Suspect]
     Active Substance: SIMEPREVIR
     Indication: CHRONIC HEPATITIS C
     Route: 048
     Dates: start: 20131210, end: 20131217
  5. REBAMIPIDE [Concomitant]
     Active Substance: REBAMIPIDE
     Indication: PROPHYLAXIS
     Route: 048
     Dates: start: 20131210, end: 20131217
  6. REBETOL [Suspect]
     Active Substance: RIBAVIRIN
     Indication: CHRONIC HEPATITIS C
     Route: 048
     Dates: start: 20131210, end: 20131217
  7. URSODEOXYCHOLIC ACID [Concomitant]
     Active Substance: URSODIOL
     Indication: CHRONIC HEPATITIS C
     Route: 048
     Dates: start: 20130930

REACTIONS (3)
  - Insomnia [Recovered/Resolved]
  - Depressive symptom [Recovered/Resolved]
  - Suicidal ideation [Recovered/Resolved]

NARRATIVE: CASE EVENT DATE: 20131210
